FAERS Safety Report 9030322 (Version 1)
Quarter: 2013Q1

REPORT INFORMATION
  Report Type: Spontaneous
  Country: PT (occurrence: PT)
  Receive Date: 20130122
  Receipt Date: 20130122
  Transmission Date: 20140127
  Serious: Yes (Other)
  Sender: FDA-Public Use
  Company Number: PT-PFIZER INC-2013020187

PATIENT
  Age: 60 Year
  Sex: Male

DRUGS (1)
  1. VANCOMYCIN HCL [Suspect]
     Indication: POSTOPERATIVE WOUND INFECTION
     Dosage: UNK

REACTIONS (3)
  - Infection [Unknown]
  - Meningitis enterococcal [Unknown]
  - Osteomyelitis [Unknown]
